FAERS Safety Report 7883884 (Version 6)
Quarter: 2013Q1

REPORT INFORMATION
  Report Type: Report from Study
  Country: FR (occurrence: FR)
  Receive Date: 20110404
  Receipt Date: 20130321
  Transmission Date: 20140127
  Serious: Yes (Death, Hospitalization, Other)
  Sender: FDA-Public Use
  Company Number: FR-MERCK-1103FRA00170

PATIENT
  Age: 83 Year
  Sex: Male
  Weight: 84 kg

DRUGS (11)
  1. SITAGLIPTIN PHOSPHATE (+) METFORMIN HYDROCHLORIDE [Suspect]
     Indication: TYPE 2 DIABETES MELLITUS
     Dosage: 2 DF, QD
     Route: 048
     Dates: start: 20100528, end: 20120130
  2. SITAGLIPTIN PHOSPHATE [Suspect]
     Indication: TYPE 2 DIABETES MELLITUS
     Dosage: 100 MG, QD
     Dates: start: 20120130, end: 20130225
  3. NOVO-NORM [Concomitant]
     Indication: TYPE 2 DIABETES MELLITUS
     Dosage: 1 MG, TID
     Route: 048
     Dates: start: 20100528, end: 20100902
  4. NOVO-NORM [Concomitant]
     Dosage: 1 MG, BID
     Route: 048
     Dates: start: 20101126, end: 20101215
  5. NOVO-NORM [Suspect]
     Indication: TYPE 2 DIABETES MELLITUS
     Dosage: UNK
     Dates: start: 20100902, end: 20101126
  6. METFORMIN [Suspect]
     Indication: TYPE 2 DIABETES MELLITUS
     Dosage: 1 DF, BID
     Dates: start: 20120130
  7. AMLOR [Concomitant]
     Indication: HYPERTENSION
     Route: 048
     Dates: start: 20061018
  8. PRESTOLE [Concomitant]
     Indication: HYPERTENSION
     Route: 048
     Dates: start: 20061018
  9. KARDEGIC [Concomitant]
     Indication: MYOCARDIAL INFARCTION
     Route: 048
     Dates: start: 20061018
  10. PLAVIX [Concomitant]
     Indication: MYOCARDIAL INFARCTION
     Route: 048
     Dates: start: 20061018
  11. LOPRESSOR [Concomitant]
     Dosage: UNK
     Dates: start: 20061018

REACTIONS (3)
  - Adenocarcinoma of colon [Unknown]
  - Myocardial infarction [Fatal]
  - Hypoglycaemia [Unknown]
